FAERS Safety Report 17705534 (Version 7)
Quarter: 2020Q3

REPORT INFORMATION
  Report Type: Report from Study
  Country: US (occurrence: US)
  Receive Date: 20200424
  Receipt Date: 20200820
  Transmission Date: 20201102
  Serious: Yes (Other)
  Sender: FDA-Public Use
  Company Number: NVSC2020US109138

PATIENT
  Sex: Female

DRUGS (2)
  1. ENTRESTO [Suspect]
     Active Substance: SACUBITRIL\VALSARTAN
     Indication: CARDIAC FAILURE
     Dosage: UNK
     Route: 065
     Dates: start: 202003
  2. ENTRESTO [Suspect]
     Active Substance: SACUBITRIL\VALSARTAN
     Dosage: 200 MG (97/103 MG), UNKNOWN
     Route: 065

REACTIONS (25)
  - Goitre [Unknown]
  - Fluid retention [Unknown]
  - Limb discomfort [Unknown]
  - Musculoskeletal discomfort [Unknown]
  - Back pain [Not Recovered/Not Resolved]
  - Malaise [Unknown]
  - Blood cholesterol increased [Unknown]
  - Fall [Unknown]
  - Fatigue [Recovering/Resolving]
  - Dysphagia [Unknown]
  - Cardiac failure [Unknown]
  - Balance disorder [Unknown]
  - Pain [Unknown]
  - Weight abnormal [Unknown]
  - Tracheal mass [Unknown]
  - Dyspnoea exertional [Unknown]
  - Muscle twitching [Unknown]
  - Sleep apnoea syndrome [Unknown]
  - Cough [Not Recovered/Not Resolved]
  - Renal disorder [Unknown]
  - Dyspnoea [Unknown]
  - Fracture [Unknown]
  - Weight increased [Unknown]
  - Depression [Unknown]
  - Pharyngeal oedema [Unknown]

NARRATIVE: CASE EVENT DATE: 2020
